FAERS Safety Report 9656388 (Version 5)
Quarter: 2014Q1

REPORT INFORMATION
  Report Type: Report from Study
  Country: US (occurrence: US)
  Receive Date: 20131030
  Receipt Date: 20140220
  Transmission Date: 20141002
  Serious: No
  Sender: FDA-Public Use
  Company Number: US-VERTEX PHARMACEUTICALS INC-2013-010626

PATIENT
  Age: 65 Year
  Sex: Female
  Weight: 63 kg

DRUGS (4)
  1. VX-950 (TELAPREVIR) [Suspect]
     Indication: HEPATITIS C
     Dosage: 750 MG, TID
     Route: 048
     Dates: start: 20131001, end: 20131119
  2. RIBAVIRIN [Suspect]
     Indication: HEPATITIS C
     Dosage: 2 DF, BID
     Dates: start: 20131001, end: 20131119
  3. PEGASYS [Suspect]
     Indication: HEPATITIS C
     Dosage: 1 DF, QW
     Dates: start: 20130930, end: 20131119
  4. SPIRONOLACTONE W/HYDROCHLOROTHIAZIDE [Concomitant]
     Indication: FLUID RETENTION
     Dosage: 25 MG, QD

REACTIONS (9)
  - Dizziness [Not Recovered/Not Resolved]
  - Hypersomnia [Recovered/Resolved]
  - Dysarthria [Recovered/Resolved]
  - Cough [Not Recovered/Not Resolved]
  - Sluggishness [Recovered/Resolved]
  - Asthenia [Recovered/Resolved]
  - Rash [Recovered/Resolved]
  - Pruritus [Recovered/Resolved]
  - Drug ineffective [Unknown]
